FAERS Safety Report 18258915 (Version 2)
Quarter: 2020Q3

REPORT INFORMATION
  Report Type: Report from Study
  Country: US (occurrence: US)
  Receive Date: 20200911
  Receipt Date: 20200930
  Transmission Date: 20201103
  Serious: Yes (Hospitalization)
  Sender: FDA-Public Use
  Company Number: US-JNJFOC-A-NJ2019-190362

PATIENT
  Age: 57 Year
  Sex: Male
  Weight: 53.6 kg

DRUGS (29)
  1. UPTRAVI [Suspect]
     Active Substance: SELEXIPAG
     Route: 048
     Dates: start: 20200827, end: 20200829
  2. FLOMAX [Concomitant]
     Active Substance: TAMSULOSIN HYDROCHLORIDE
  3. DIFLUCAN [Concomitant]
     Active Substance: FLUCONAZOLE
  4. ISENTRESS [Concomitant]
     Active Substance: RALTEGRAVIR POTASSIUM
  5. PRILOSEC [Concomitant]
     Active Substance: OMEPRAZOLE MAGNESIUM
  6. CORGARD [Concomitant]
     Active Substance: NADOLOL
  7. FOSAMAX [Concomitant]
     Active Substance: ALENDRONATE SODIUM
  8. CELEXA [Concomitant]
     Active Substance: CITALOPRAM HYDROBROMIDE
  9. VENTOLIN HFA [Concomitant]
     Active Substance: ALBUTEROL SULFATE
     Dosage: 1?2 PUFFS INTO THE LUNGS EVERY 4 HOURS AS NEEDED
     Route: 055
  10. UPTRAVI [Suspect]
     Active Substance: SELEXIPAG
     Indication: PULMONARY ARTERIAL HYPERTENSION
     Route: 048
     Dates: start: 201901, end: 202008
  11. UPTRAVI [Suspect]
     Active Substance: SELEXIPAG
     Dosage: PLAN TO UPTITRATE TO MAX DOSE OF 1600MCG TWICE DAILY
     Route: 048
     Dates: start: 20200830
  12. REVATIO [Concomitant]
     Active Substance: SILDENAFIL CITRATE
     Route: 048
  13. KEPPRA [Concomitant]
     Active Substance: LEVETIRACETAM
     Indication: SEIZURE PROPHYLAXIS
  14. MARINOL [Concomitant]
     Active Substance: DRONABINOL
  15. KALETRA [Concomitant]
     Active Substance: LOPINAVIR\RITONAVIR
  16. VITAMIN K1 [Concomitant]
     Active Substance: PHYTONADIONE
  17. MIDAMOR [Suspect]
     Active Substance: AMILORIDE HYDROCHLORIDE
     Dates: end: 202008
  18. OXYGEN. [Concomitant]
     Active Substance: OXYGEN
  19. EPIVIR [Concomitant]
     Active Substance: LAMIVUDINE
  20. KLOR?CON [Concomitant]
     Active Substance: POTASSIUM CHLORIDE
  21. DEMADEX [Concomitant]
     Active Substance: TORSEMIDE
  22. PRAMOSONE [Concomitant]
     Active Substance: HYDROCORTISONE ACETATE\PRAMOXINE HYDROCHLORIDE
  23. VITAMIN B1 [Concomitant]
     Active Substance: THIAMINE HYDROCHLORIDE
  24. VITAMINS NOS [Concomitant]
     Active Substance: VITAMINS
  25. OXYGEN. [Concomitant]
     Active Substance: OXYGEN
     Dosage: INCREASED TO 15L OXYGEN MASK
  26. COMBIVENT RESPIMAT [Concomitant]
     Active Substance: ALBUTEROL SULFATE\IPRATROPIUM BROMIDE
  27. BREO ELLIPTA [Concomitant]
     Active Substance: FLUTICASONE FUROATE\VILANTEROL TRIFENATATE
  28. TYLENOL [Concomitant]
     Active Substance: ACETAMINOPHEN
  29. IRON FERROUS SULFATE [Concomitant]
     Active Substance: FERROUS SULFATE

REACTIONS (20)
  - Head injury [Unknown]
  - Face injury [Unknown]
  - Ligament sprain [Unknown]
  - Ecchymosis [Recovering/Resolving]
  - Hyperkalaemia [Recovered/Resolved]
  - Hypotension [Recovering/Resolving]
  - Asthenia [Recovering/Resolving]
  - Chronic kidney disease [Recovering/Resolving]
  - Contusion [Recovering/Resolving]
  - Injury [Recovering/Resolving]
  - Wound [Recovering/Resolving]
  - Secondary adrenocortical insufficiency [Recovering/Resolving]
  - Subarachnoid haemorrhage [Recovering/Resolving]
  - Pneumonia [Recovering/Resolving]
  - Weight decreased [Recovering/Resolving]
  - Hypoxia [Recovering/Resolving]
  - Myalgia [Unknown]
  - Malaise [Recovering/Resolving]
  - Fall [Recovered/Resolved]
  - Product dose omission issue [Unknown]

NARRATIVE: CASE EVENT DATE: 20200817
